FAERS Safety Report 8287644-4 (Version None)
Quarter: 2012Q2

REPORT INFORMATION
  Report Type: 
  Country: None (occurrence: None)
  Receive Date: 20120416
  Receipt Date: 20120411
  Transmission Date: 20120825
  Serious: Yes (Other)
  Sender: FDA-Public Use
  Company Number: PHHO2012GB004548

PATIENT
  Age: 53 Year

DRUGS (2)
  1. BISPHOSPHONATES [Concomitant]
     Dosage: UNK
     Dates: end: 20101001
  2. ZOLEDRONOC ACID [Suspect]
     Indication: METASTASES TO BONE
     Dosage: 4 MG, UNK
     Route: 042

REACTIONS (1)
  - TOOTH LOSS [None]
